FAERS Safety Report 4533051-7 (Version None)
Quarter: 2004Q4

REPORT INFORMATION
  Report Type: 
  Country: None (occurrence: None)
  Receive Date: 20041221
  Receipt Date: 20041214
  Transmission Date: 20050328
  Serious: Yes (Hospitalization)
  Sender: FDA-Public Use
  Company Number: 200413923JP

PATIENT
  Age: 16 Year
  Sex: Female

DRUGS (3)
  1. KETEK [Suspect]
     Route: 048
     Dates: start: 20041128, end: 20041130
  2. SELBEX [Concomitant]
  3. CALONAL [Concomitant]

REACTIONS (1)
  - NEUTROPENIA [None]
